FAERS Safety Report 25514828 (Version 1)
Quarter: 2025Q3

REPORT INFORMATION
  Report Type: Spontaneous
  Country: US (occurrence: US)
  Receive Date: 20250703
  Receipt Date: 20250703
  Transmission Date: 20251021
  Serious: No
  Sender: RADIUS PHARM
  Company Number: US-RADIUS HEALTH INC.-2019US004340

PATIENT
  Sex: Female

DRUGS (1)
  1. TYMLOS [Suspect]
     Active Substance: ABALOPARATIDE
     Indication: Osteoporosis postmenopausal
     Route: 058
     Dates: start: 20191118, end: 20191119

REACTIONS (4)
  - Nausea [Unknown]
  - Migraine [Unknown]
  - Product prescribing error [Unknown]
  - Vascular headache [Unknown]

NARRATIVE: CASE EVENT DATE: 20191118
